FAERS Safety Report 9543793 (Version 1)
Quarter: 2013Q2

REPORT INFORMATION
  Report Type: Spontaneous
  Country: US (occurrence: None)
  Receive Date: 20130524
  Receipt Date: 20130524
  Transmission Date: 20140414
  Serious: Yes (Other)
  Sender: FDA-Public Use
  Company Number: PHEH2013US002285

PATIENT
  Age: 63 Year
  Sex: Female

DRUGS (2)
  1. GILENYA [Suspect]
     Indication: RELAPSING-REMITTING MULTIPLE SCLEROSIS
  2. REMERON (MIRTAZAPINE) [Concomitant]

REACTIONS (7)
  - Multiple sclerosis relapse [None]
  - Oral herpes [None]
  - Urinary tract infection [None]
  - Back pain [None]
  - Pruritus [None]
  - Dysgraphia [None]
  - Vision blurred [None]
